FAERS Safety Report 8047133-9 (Version None)
Quarter: 2012Q1

REPORT INFORMATION
  Report Type: 
  Country: None (occurrence: None)
  Receive Date: 20120116
  Receipt Date: 20120112
  Transmission Date: 20120608
  Serious: Yes (Death, Hospitalization)
  Sender: FDA-Public Use
  Company Number: US-BRISTOL-MYERS SQUIBB COMPANY-15964620

PATIENT
  Age: 59 Year
  Sex: Male
  Weight: 93 kg

DRUGS (19)
  1. ETOPOSIDE [Suspect]
     Indication: DIFFUSE LARGE B-CELL LYMPHOMA
     Dates: start: 20100903, end: 20100903
  2. VALTREX [Concomitant]
     Indication: PROPHYLAXIS
     Dates: start: 20100910
  3. COMPAZINE [Concomitant]
     Indication: NAUSEA
     Dates: start: 20100322
  4. CYTARABINE [Suspect]
     Indication: DIFFUSE LARGE B-CELL LYMPHOMA
     Dates: start: 20100903, end: 20100906
  5. DIPHENHYDRAMINE HCL [Concomitant]
     Indication: PREMEDICATION
     Dates: start: 20100909, end: 20100909
  6. LISINOPRIL [Concomitant]
     Indication: HYPERTENSION
     Dates: start: 20100910
  7. CARMUSTINE [Suspect]
     Indication: DIFFUSE LARGE B-CELL LYMPHOMA
     Dates: start: 20100902, end: 20100902
  8. LASIX [Concomitant]
     Indication: HYPERBILIRUBINAEMIA
     Dates: start: 20100910
  9. ACTIGALL [Concomitant]
     Indication: HYPERBILIRUBINAEMIA
     Dates: start: 20100831
  10. FLUOXETINE [Concomitant]
     Indication: DEPRESSION
  11. PRILOSEC [Concomitant]
     Indication: GASTROOESOPHAGEAL REFLUX DISEASE
  12. DEXAMETHASONE [Concomitant]
     Indication: PREMEDICATION
     Dates: start: 20100902, end: 20100909
  13. OXYGEN [Concomitant]
     Indication: HYPOXIA
     Dates: start: 20100909, end: 20101001
  14. SIMVASTATIN [Concomitant]
     Indication: HYPERCHOLESTEROLAEMIA
  15. VANCOMYCIN [Concomitant]
     Indication: INFECTION
     Dates: start: 20100909, end: 20100919
  16. RITUXIMAB [Suspect]
     Indication: DIFFUSE LARGE B-CELL LYMPHOMA
  17. MELPHALAN [Suspect]
     Indication: DIFFUSE LARGE B-CELL LYMPHOMA
     Dates: start: 20100907, end: 20100907
  18. ONDANSETRON [Concomitant]
     Indication: PREMEDICATION
     Dates: start: 20100902, end: 20100909
  19. LORAZEPAM [Concomitant]
     Indication: ANXIETY

REACTIONS (2)
  - VENOOCCLUSIVE LIVER DISEASE [None]
  - DEATH [None]
